FAERS Safety Report 9257348 (Version 1)
Quarter: 2013Q2

REPORT INFORMATION
  Report Type: Spontaneous
  Country: US (occurrence: US)
  Receive Date: 20130426
  Receipt Date: 20130426
  Transmission Date: 20140414
  Serious: Yes (Hospitalization)
  Sender: FDA-Public Use
  Company Number: US-BAYER-2013-050887

PATIENT
  Age: 32 Year
  Sex: Female
  Weight: 73.02 kg

DRUGS (4)
  1. YASMIN [Suspect]
  2. SYNTHROID [Concomitant]
     Dosage: 0.05 MG TO 0.125 MG DAILY
     Route: 048
  3. SYNTHROID [Concomitant]
     Dosage: 0.05 MG DAILY
     Route: 048
  4. OMNICEF [Concomitant]
     Dosage: 300 MG, BID
     Route: 048
     Dates: start: 20050127

REACTIONS (2)
  - Pulmonary embolism [Recovered/Resolved]
  - Jugular vein thrombosis [Recovered/Resolved]
